FAERS Safety Report 10031412 (Version 1)
Quarter: 2014Q1

REPORT INFORMATION
  Report Type: Spontaneous
  Country: IT (occurrence: IT)
  Receive Date: 20140324
  Receipt Date: 20140324
  Transmission Date: 20141002
  Serious: Yes (Hospitalization)
  Sender: FDA-Public Use
  Company Number: IT-RANBAXY-2014RR-79173

PATIENT
  Age: 73 Year
  Sex: Male

DRUGS (3)
  1. PARACETAMOL [Suspect]
     Indication: PYREXIA
     Dosage: 500 MG COMPLETE
     Route: 048
     Dates: start: 20140208, end: 20140208
  2. OLPRESS [Concomitant]
     Indication: HYPERTENSION
     Route: 065
  3. SIMVASTATIN [Concomitant]
     Indication: DYSLIPIDAEMIA
     Route: 065

REACTIONS (1)
  - Erythema [Recovered/Resolved]
